FAERS Safety Report 20457582 (Version 3)
Quarter: 2022Q1

REPORT INFORMATION
  Report Type: Report from Study
  Country: CO (occurrence: CO)
  Receive Date: 20220210
  Receipt Date: 20220331
  Transmission Date: 20220424
  Serious: Yes (Disabling, Other)
  Sender: FDA-Public Use
  Company Number: CO-NOVARTISPH-NVSC2021CO245582

PATIENT
  Sex: Male

DRUGS (1)
  1. COSENTYX [Suspect]
     Active Substance: SECUKINUMAB
     Indication: Psoriasis
     Dosage: 300 MG, QMO
     Route: 058

REACTIONS (12)
  - Intervertebral disc protrusion [Unknown]
  - Spinal pain [Unknown]
  - Cataract [Unknown]
  - Illness [Unknown]
  - Sciatica [Unknown]
  - Pruritus [Unknown]
  - Stress [Recovering/Resolving]
  - Mobility decreased [Unknown]
  - COVID-19 [Recovering/Resolving]
  - Pyrexia [Unknown]
  - Myalgia [Unknown]
  - Chills [Unknown]
